FAERS Safety Report 7822795-7 (Version None)
Quarter: 2011Q4

REPORT INFORMATION
  Report Type: 
  Country: None (occurrence: None)
  Receive Date: 20111018
  Receipt Date: 20110811
  Transmission Date: 20120403
  Serious: No
  Sender: FDA-Public Use
  Company Number: US-ASTRAZENECA-2011SE48049

PATIENT
  Sex: Male

DRUGS (4)
  1. SYMBICORT [Suspect]
     Dosage: 160/4.5 MCG
     Route: 055
  2. DULERA ORAL INHALATION [Concomitant]
  3. SYMBICORT [Suspect]
     Dosage: 80/4.5 MCG DAILY
     Route: 055
  4. PULMICORT [Suspect]
     Indication: SINUS DISORDER
     Route: 055

REACTIONS (4)
  - DRUG PRESCRIBING ERROR [None]
  - INCREASED UPPER AIRWAY SECRETION [None]
  - CONDITION AGGRAVATED [None]
  - OFF LABEL USE [None]
